FAERS Safety Report 14475995 (Version 2)
Quarter: 2018Q3

REPORT INFORMATION
  Report Type: Spontaneous
  Country: US (occurrence: US)
  Receive Date: 20180201
  Receipt Date: 20180725
  Transmission Date: 20181010
  Serious: No
  Sender: FDA-Public Use
  Company Number: US-ACTELION-A-NJ2018-166574

PATIENT
  Age: 5 Year
  Sex: Male

DRUGS (4)
  1. TRACLEER [Suspect]
     Active Substance: BOSENTAN
     Dosage: 32 MG, BID
     Route: 048
  2. REMODULIN [Suspect]
     Active Substance: TREPROSTINIL
     Indication: PRODUCT USED FOR UNKNOWN INDICATION
     Dosage: 50.6 NG/KG, PER MIN
     Route: 058
     Dates: start: 20180112
  3. REMODULIN [Suspect]
     Active Substance: TREPROSTINIL
     Dosage: 65.2 UNK, UNK
     Route: 042
  4. TRACLEER [Suspect]
     Active Substance: BOSENTAN
     Indication: PULMONARY HYPERTENSION
     Dosage: 31.25 MG, BID
     Route: 048
     Dates: start: 20180122

REACTIONS (8)
  - Epistaxis [Recovered/Resolved]
  - Eye pruritus [Unknown]
  - Erythema [Unknown]
  - Radial pulse increased [Unknown]
  - Pain in extremity [Not Recovered/Not Resolved]
  - Peripheral swelling [Recovered/Resolved]
  - Pain [Recovering/Resolving]
  - Scleral discolouration [Unknown]

NARRATIVE: CASE EVENT DATE: 20180122
